FAERS Safety Report 25157250 (Version 1)
Quarter: 2025Q2

REPORT INFORMATION
  Report Type: Other
  Country: GB (occurrence: GB)
  Receive Date: 20250403
  Receipt Date: 20250403
  Transmission Date: 20250717
  Serious: Yes (Other)
  Sender: GLENMARK
  Company Number: GB-MHRA-TPP34195758C971426YC1740068573668

PATIENT
  Age: 84 Year
  Sex: Male
  Weight: 73 kg

DRUGS (21)
  1. DAPAGLIFLOZIN [Suspect]
     Active Substance: DAPAGLIFLOZIN
     Indication: Adverse drug reaction
     Route: 048
     Dates: start: 20250113, end: 20250220
  2. RAMIPRIL [Concomitant]
     Active Substance: RAMIPRIL
     Indication: Ill-defined disorder
     Dosage: 1 DOSAGE FORM, QD (TAKE ONE CAPSULE DAILY FOR BLOOD PRESSURE)
     Route: 065
     Dates: start: 20241119, end: 20250120
  3. RAMIPRIL [Concomitant]
     Active Substance: RAMIPRIL
     Indication: Blood pressure abnormal
  4. CHLORAMPHENICOL [Concomitant]
     Active Substance: CHLORAMPHENICOL
     Indication: Ill-defined disorder
     Route: 065
     Dates: start: 20241129, end: 20241227
  5. KETOCONAZOLE [Concomitant]
     Active Substance: KETOCONAZOLE
     Indication: Ill-defined disorder
     Route: 065
     Dates: start: 20241227, end: 20241227
  6. HYDROCORTISONE [Concomitant]
     Active Substance: HYDROCORTISONE
     Indication: Ill-defined disorder
     Dosage: UNK UNK, BID (APPLY TWICE DAILY FOR ONE WEEK ONLY WITH MICONA...)
     Route: 065
     Dates: start: 20241227, end: 20250124
  7. MICONAZOLE [Concomitant]
     Active Substance: MICONAZOLE
     Indication: Ill-defined disorder
     Dosage: UNK UNK, BID (APPLY TWICE DAILY FOR FOUR WEEKS OR UNTIL CLEARED)
     Route: 065
     Dates: start: 20241227, end: 20250126
  8. LOSARTAN [Concomitant]
     Active Substance: LOSARTAN
     Indication: Ill-defined disorder
     Dosage: 1 DOSAGE FORM, QD (TAKE ONE TABLET DAILY FOR BLOOD PRESSURE)
     Route: 065
     Dates: start: 20250120
  9. LOSARTAN [Concomitant]
     Active Substance: LOSARTAN
     Indication: Blood pressure abnormal
  10. Eyeaze [Concomitant]
     Indication: Ill-defined disorder
     Dosage: UNK UNK, QID (ONE DROP TO BE TAKEN FOUR TIMES DAILY  TO BOTH ...)
     Route: 065
     Dates: start: 20250210
  11. MAXITROL [Concomitant]
     Active Substance: DEXAMETHASONE\NEOMYCIN SULFATE\POLYMYXIN B SULFATE
     Indication: Ill-defined disorder
     Dosage: UNK UNK, TID (APPLY 3 TIMES/DAY)
     Route: 065
     Dates: start: 20250210, end: 20250215
  12. Proshield [Concomitant]
     Indication: Ill-defined disorder
     Route: 061
     Dates: start: 20250220
  13. FUROSEMIDE [Concomitant]
     Active Substance: FUROSEMIDE
     Indication: Ill-defined disorder
     Dosage: 2 DOSAGE FORM, OD (TAKE TWO TABLET EACH MORNING)
     Route: 065
     Dates: start: 20240209
  14. SPIRONOLACTONE [Concomitant]
     Active Substance: SPIRONOLACTONE
     Indication: Ill-defined disorder
     Dosage: 1 DOSAGE FORM, QD (TAKE ONE TABLET DAILY)
     Route: 065
     Dates: start: 20240209
  15. CHOLECALCIFEROL [Concomitant]
     Active Substance: CHOLECALCIFEROL
     Indication: Ill-defined disorder
     Dosage: UNK UNK, QD (ONE DAILY FOR LIFE)
     Route: 065
     Dates: start: 20240314
  16. OMEPRAZOLE [Concomitant]
     Active Substance: OMEPRAZOLE
     Indication: Ill-defined disorder
     Dosage: UNK UNK, QD (TAKE ONE DAILY)
     Route: 065
     Dates: start: 20240606
  17. SIMVASTATIN [Concomitant]
     Active Substance: SIMVASTATIN
     Indication: Ill-defined disorder
     Dosage: UNK UNK, QD (DAILY)
     Route: 065
     Dates: start: 20240606
  18. TAMSULOSIN HYDROCHLORIDE [Concomitant]
     Active Substance: TAMSULOSIN HYDROCHLORIDE
     Indication: Ill-defined disorder
     Dosage: 1 DOSAGE FORM, QD (1 CAPSULE ONCE A DAY)
     Route: 065
     Dates: start: 20240606
  19. APIXABAN [Concomitant]
     Active Substance: APIXABAN
     Indication: Ill-defined disorder
     Dosage: 1 DOSAGE FORM, BID (TAKE ONE TABLET TWICE DAILY TO THIN BLOOD)
     Route: 065
     Dates: start: 20241119
  20. APIXABAN [Concomitant]
     Active Substance: APIXABAN
     Indication: Anticoagulant therapy
  21. BISACODYL [Concomitant]
     Active Substance: BISACODYL
     Indication: Ill-defined disorder
     Dosage: 5 MILLIGRAM, BID (5MG BD -CAN INCREASE TO 2 BD IF NECESSARY. TAKE...  )
     Route: 065
     Dates: start: 20241119

REACTIONS (3)
  - Skin disorder [Recovered/Resolved]
  - Rash [Recovered/Resolved]
  - Intertrigo [Unknown]

NARRATIVE: CASE EVENT DATE: 20250210
